FAERS Safety Report 22336485 (Version 3)
Quarter: 2024Q3

REPORT INFORMATION
  Report Type: Spontaneous
  Country: US (occurrence: US)
  Receive Date: 20230518
  Receipt Date: 20240906
  Transmission Date: 20241017
  Serious: No
  Sender: ROCHE
  Company Number: US-ROCHE-3171762

PATIENT
  Age: 84 Year
  Sex: Male

DRUGS (1)
  1. ACTEMRA ACTPEN [Suspect]
     Active Substance: TOCILIZUMAB
     Indication: Rheumatoid arthritis
     Dosage: STRENGTH: 162MG/0.9ML
     Route: 058

REACTIONS (7)
  - Injection site erythema [Unknown]
  - Injection site pruritus [Unknown]
  - Platelet count decreased [Unknown]
  - Erythema [Unknown]
  - Vertigo positional [Unknown]
  - Blood sodium decreased [Unknown]
  - Fall [Unknown]

NARRATIVE: CASE EVENT DATE: 20230201
